FAERS Safety Report 5471554-1 (Version None)
Quarter: 2007Q3

REPORT INFORMATION
  Report Type: 
  Country: None (occurrence: None)
  Receive Date: 20070928
  Receipt Date: 20070108
  Transmission Date: 20080115
  Serious: No
  Sender: FDA-Public Use
  Company Number: US-BRISTOL-MYERS SQUIBB COMPANY-13635396

PATIENT
  Age: 63 Year
  Sex: Female

DRUGS (2)
  1. DEFINITY [Suspect]
     Indication: ULTRASOUND SCAN
     Dosage: GIVEN AT 0.2CC IV INTERVALS FOR 3 INTERVALS = 0.6 CC IV (TOTAL ADMINISTERED)
     Dates: start: 20070105, end: 20070105
  2. VANCOMYCIN [Concomitant]

REACTIONS (1)
  - MUSCLE SPASMS [None]
